FAERS Safety Report 5465870-7 (Version None)
Quarter: 2007Q3

REPORT INFORMATION
  Report Type: 
  Country: None (occurrence: None)
  Receive Date: 20070924
  Receipt Date: 20070802
  Transmission Date: 20080115
  Serious: Yes (Disabling, Other)
  Sender: FDA-Public Use
  Company Number: US-PURDUE-USA_2007_0029249

PATIENT
  Sex: Male

DRUGS (1)
  1. OXYCONTIN [Suspect]
     Indication: PAIN
     Dates: start: 20000801, end: 20040201

REACTIONS (4)
  - DEPRESSION [None]
  - FATIGUE [None]
  - IMPAIRED WORK ABILITY [None]
  - SUICIDAL IDEATION [None]
